FAERS Safety Report 7328822-8 (Version None)
Quarter: 2011Q1

REPORT INFORMATION
  Report Type: 
  Country: None (occurrence: None)
  Receive Date: 20110303
  Receipt Date: 20110221
  Transmission Date: 20110831
  Serious: Yes (Other)
  Sender: FDA-Public Use
  Company Number: US-JNJFOC-20110207855

PATIENT
  Age: 40 Year
  Sex: Female
  Weight: 70.31 kg

DRUGS (1)
  1. BENGAY ULTRA STRENGTH PATCH [Suspect]
     Indication: ANALGESIC THERAPY
     Dosage: ONE PATCH
     Route: 061

REACTIONS (3)
  - EXPIRED DRUG ADMINISTERED [None]
  - WRONG TECHNIQUE IN DRUG USAGE PROCESS [None]
  - APPLICATION SITE BURN [None]
